FAERS Safety Report 18227534 (Version 1)
Quarter: 2020Q3

REPORT INFORMATION
  Report Type: Spontaneous
  Country: JP (occurrence: JP)
  Receive Date: 20200903
  Receipt Date: 20200903
  Transmission Date: 20201103
  Serious: Yes (Other)
  Sender: FDA-Public Use
  Company Number: JP-ROCHE-2658032

PATIENT
  Age: 71 Year
  Sex: Male

DRUGS (2)
  1. TULOBUTEROL [Concomitant]
     Active Substance: TULOBUTEROL
  2. XOFLUZA [Suspect]
     Active Substance: BALOXAVIR MARBOXIL
     Indication: INFLUENZA
     Route: 048

REACTIONS (1)
  - Pneumonia [Recovered/Resolved]
